FAERS Safety Report 25872237 (Version 1)
Quarter: 2025Q4

REPORT INFORMATION
  Report Type: Report from Study
  Country: JP (occurrence: JP)
  Receive Date: 20251002
  Receipt Date: 20251002
  Transmission Date: 20260117
  Serious: Yes (Other)
  Sender: ROCHE
  Company Number: JP-ROCHE-10000396421

PATIENT

DRUGS (2)
  1. ATEZOLIZUMAB [Suspect]
     Active Substance: ATEZOLIZUMAB
     Indication: Hepatocellular carcinoma
     Route: 065
  2. BEVACIZUMAB [Suspect]
     Active Substance: BEVACIZUMAB
     Indication: Hepatocellular carcinoma
     Route: 065

REACTIONS (27)
  - Rash [Unknown]
  - Pruritus [Unknown]
  - Fatigue [Unknown]
  - Malaise [Unknown]
  - Decreased appetite [Unknown]
  - Hypertension [Unknown]
  - Colitis [Unknown]
  - Diarrhoea [Unknown]
  - Encephalopathy [Unknown]
  - Dyspnoea [Unknown]
  - Adrenal insufficiency [Unknown]
  - Platelet count decreased [Unknown]
  - Aspartate aminotransferase increased [Unknown]
  - Alanine aminotransferase increased [Unknown]
  - Mouth haemorrhage [Unknown]
  - Hyperthyroidism [Unknown]
  - Amylase increased [Unknown]
  - Neutrophil count decreased [Unknown]
  - Cytokine release syndrome [Unknown]
  - Proteinuria [Unknown]
  - Gastrointestinal haemorrhage [Unknown]
  - Blood creatine increased [Unknown]
  - Epistaxis [Unknown]
  - Hypothyroidism [Unknown]
  - Tumour haemorrhage [Unknown]
  - Hyperammonaemia [Unknown]
  - Haemorrhage [Unknown]
